FAERS Safety Report 16744787 (Version 1)
Quarter: 2019Q3

REPORT INFORMATION
  Report Type: Report from Study
  Country: None (occurrence: BR)
  Receive Date: 20190827
  Receipt Date: 20190827
  Transmission Date: 20191005
  Serious: Yes (Hospitalization, Other)
  Sender: FDA-Public Use
  Company Number: BR-ABBVIE-19K-020-2900801-00

PATIENT
  Age: 32 Year
  Sex: Male
  Weight: 57 kg

DRUGS (2)
  1. HUMIRA [Suspect]
     Active Substance: ADALIMUMAB
     Indication: ANKYLOSING SPONDYLITIS
     Route: 058
     Dates: start: 20170228, end: 20190801
  2. NAPROXEN. [Concomitant]
     Active Substance: NAPROXEN
     Indication: ANKYLOSING SPONDYLITIS
     Dosage: 2 TABLETS WHEN PRESENTS INTENSE PAIN

REACTIONS (12)
  - Scar [Unknown]
  - Arthritis infective [Recovered/Resolved]
  - Peripheral swelling [Unknown]
  - Gait inability [Recovered/Resolved]
  - Asthenia [Unknown]
  - Arthritis [Unknown]
  - Localised infection [Unknown]
  - Immunodeficiency [Not Recovered/Not Resolved]
  - Blood disorder [Unknown]
  - Back pain [Not Recovered/Not Resolved]
  - Pain [Unknown]
  - Yellow skin [Unknown]

NARRATIVE: CASE EVENT DATE: 20190808
